FAERS Safety Report 7995418-4 (Version None)
Quarter: 2011Q4

REPORT INFORMATION
  Report Type: 
  Country: None (occurrence: None)
  Receive Date: 20111220
  Receipt Date: 20111213
  Transmission Date: 20120403
  Serious: Yes (Other)
  Sender: FDA-Public Use
  Company Number: CA-PFIZER INC-2011276711

PATIENT
  Age: 81 Year
  Sex: Female
  Weight: 58.503 kg

DRUGS (3)
  1. XALATAN [Suspect]
     Indication: GLAUCOMA
     Dosage: 1 DROP IN BOTH EYES 1X/DAY AT NIGHT
     Route: 047
  2. RAMIPRIL [Concomitant]
     Dosage: UNK
  3. LABETALOL [Concomitant]
     Dosage: UNK

REACTIONS (3)
  - BALANCE DISORDER [None]
  - NEUROPATHY PERIPHERAL [None]
  - GAIT DISTURBANCE [None]
